FAERS Safety Report 20963570 (Version 2)
Quarter: 2022Q3

REPORT INFORMATION
  Report Type: Spontaneous
  Country: GB (occurrence: GB)
  Receive Date: 20220615
  Receipt Date: 20220712
  Transmission Date: 20221027
  Serious: Yes (Death, Hospitalization, Other)
  Sender: FDA-Public Use
  Company Number: GB-CLOVIS ONCOLOGY-CLO-2022-000694

PATIENT

DRUGS (1)
  1. RUBRACA [Suspect]
     Active Substance: RUCAPARIB CAMSYLATE
     Indication: Ovarian cancer recurrent
     Dosage: 600 MILLIGRAM, BID
     Dates: start: 20210514, end: 20211105

REACTIONS (3)
  - Death [Fatal]
  - Acute myeloid leukaemia [Not Recovered/Not Resolved]
  - Metastases to central nervous system [Unknown]
